FAERS Safety Report 5021576-X (Version None)
Quarter: 2006Q2

REPORT INFORMATION
  Report Type: 
  Country: None (occurrence: None)
  Receive Date: 20060608
  Receipt Date: 20060409
  Transmission Date: 20061013
  Serious: Yes (Hospitalization, Other)
  Sender: FDA-Public Use
  Company Number: AT-ABBOTT-06P-009-0330353-00

PATIENT
  Age: 70 Year
  Sex: Male
  Weight: 51 kg

DRUGS (7)
  1. ZEMPLAR [Suspect]
     Indication: HYPERPARATHYROIDISM
     Route: 042
     Dates: start: 20051114, end: 20051214
  2. ZEMPLAR [Suspect]
     Indication: RENAL FAILURE CHRONIC
     Route: 042
     Dates: start: 20051215, end: 20051231
  3. ZEMPLAR [Suspect]
  4. ANTIPHOSPHATE [Concomitant]
     Indication: PH BODY FLUID
     Route: 065
     Dates: start: 20050728, end: 20060304
  5. ANTIPHOSPHATE [Concomitant]
     Route: 048
     Dates: start: 20060413, end: 20060527
  6. CALCITRIOL [Concomitant]
     Indication: DRUG USE FOR UNKNOWN INDICATION
     Route: 065
  7. MIMPARA [Concomitant]
     Indication: DRUG USE FOR UNKNOWN INDICATION
     Route: 065
     Dates: start: 20060213

REACTIONS (4)
  - HYPERCALCAEMIA [None]
  - HYPERPHOSPHATAEMIA [None]
  - SYNCOPE [None]
  - TREATMENT NONCOMPLIANCE [None]
